FAERS Safety Report 8618701-8 (Version None)
Quarter: 2012Q3

REPORT INFORMATION
  Report Type: 
  Country: None (occurrence: None)
  Receive Date: 20120815
  Receipt Date: 20120815
  Transmission Date: 20120928
  Serious: No
  Sender: FDA-Public Use
  Company Number: None

PATIENT
  Sex: Female

DRUGS (1)
  1. KINERET [Suspect]
     Indication: ILL-DEFINED DISORDER
     Dosage: 100MG DAILY SQ
     Route: 058
     Dates: start: 20120723

REACTIONS (3)
  - DIZZINESS [None]
  - MASS [None]
  - CONTUSION [None]
